FAERS Safety Report 4618728-7 (Version None)
Quarter: 2005Q1

REPORT INFORMATION
  Report Type: 
  Country: None (occurrence: None)
  Receive Date: 20050323
  Receipt Date: 20050304
  Transmission Date: 20050727
  Serious: Yes (Hospitalization)
  Sender: FDA-Public Use
  Company Number: USA050392465

PATIENT
  Age: 79 Year
  Sex: Male
  Weight: 65 kg

DRUGS (3)
  1. HUMULIN N [Suspect]
     Dosage: 60 U/2 DAY
     Dates: start: 19900101, end: 20041101
  2. HUMULIN R [Suspect]
     Dates: start: 19900101, end: 20000101
  3. LISINOPRIL [Concomitant]

REACTIONS (7)
  - BLOOD GLUCOSE DECREASED [None]
  - BODY HEIGHT DECREASED [None]
  - GINGIVAL INFECTION [None]
  - GLYCOSYLATED HAEMOGLOBIN INCREASED [None]
  - OEDEMA PERIPHERAL [None]
  - RASH [None]
  - SKIN DISCOLOURATION [None]
